FAERS Safety Report 21486136 (Version 6)
Quarter: 2023Q1

REPORT INFORMATION
  Report Type: Report from Study
  Country: DE (occurrence: None)
  Receive Date: 20221020
  Receipt Date: 20230307
  Transmission Date: 20230418
  Serious: Yes (Death, Life-Threatening, Hospitalization, Other)
  Sender: FDA-Public Use
  Company Number: 2022A345034

PATIENT
  Age: 2348 Day
  Sex: Male
  Weight: 50 kg

DRUGS (8)
  1. SELUMETINIB [Suspect]
     Active Substance: SELUMETINIB
     Indication: Hypothalamo-pituitary disorder
     Route: 048
     Dates: start: 20220317, end: 20220911
  2. SELUMETINIB [Suspect]
     Active Substance: SELUMETINIB
     Indication: Neurofibroma
     Route: 048
     Dates: start: 20220317, end: 20220911
  3. HYDROCORTISONE [Concomitant]
     Active Substance: HYDROCORTISONE
     Dosage: 6-6-3 MG
     Dates: start: 2020
  4. DESMOPRESSIN [Concomitant]
     Active Substance: DESMOPRESSIN
     Dosage: 0,15-0,1-0,25MG
     Dates: start: 2020, end: 20220911
  5. LTHYROXINE [Concomitant]
     Dosage: 75 UG/D
     Dates: start: 2020
  6. MELATONIN [Concomitant]
     Active Substance: MELATONIN
     Dosage: 10MG
     Dates: start: 2022, end: 20220911
  7. RIVAROXABAN [Concomitant]
     Active Substance: RIVAROXABAN
     Dosage: 15 MG
     Dates: start: 20220909, end: 20220910
  8. METHYLPHENIDATE [Concomitant]
     Active Substance: METHYLPHENIDATE
     Dosage: 20 MG
     Dates: start: 2021, end: 20220911

REACTIONS (8)
  - Rhabdomyolysis [Recovered/Resolved]
  - Disease complication [Fatal]
  - Off label use [Unknown]
  - Intestinal perforation [Fatal]
  - Hydrocephalus [Fatal]
  - Renal failure [Fatal]
  - Myopathy [Fatal]
  - Neoplasm progression [Fatal]

NARRATIVE: CASE EVENT DATE: 20220911
